FAERS Safety Report 6301362-0 (Version None)
Quarter: 2009Q3

REPORT INFORMATION
  Report Type: 
  Country: None (occurrence: None)
  Receive Date: 20090807
  Receipt Date: 20090731
  Transmission Date: 20100115
  Serious: Yes (Hospitalization, Other)
  Sender: FDA-Public Use
  Company Number: US-BAXTER-2009BH012309

PATIENT
  Sex: Male

DRUGS (1)
  1. HEPARIN SODIUM INJECTION [Suspect]
     Indication: PROTEIN S DEFICIENCY
     Route: 058
     Dates: start: 20080101, end: 20080101

REACTIONS (15)
  - ABDOMINAL PAIN [None]
  - ASTHENIA [None]
  - BLOOD PRESSURE DECREASED [None]
  - DEEP VEIN THROMBOSIS [None]
  - ECCHYMOSIS [None]
  - FATIGUE [None]
  - HYPERHIDROSIS [None]
  - HYPOAESTHESIA [None]
  - NAUSEA [None]
  - OEDEMA PERIPHERAL [None]
  - PAIN IN EXTREMITY [None]
  - PLATELET COUNT DECREASED [None]
  - RENAL FAILURE ACUTE [None]
  - SKIN DISCOLOURATION [None]
  - SYNCOPE [None]
